FAERS Safety Report 10731290 (Version 1)
Quarter: 2015Q1

REPORT INFORMATION
  Report Type: Spontaneous
  Country: US (occurrence: US)
  Receive Date: 20150122
  Receipt Date: 20150122
  Transmission Date: 20150721
  Serious: No
  Sender: FDA-Public Use
  Company Number: US-BAUSCH-SYM-2013-12238

PATIENT
  Sex: Female

DRUGS (2)
  1. XENAZINE [Suspect]
     Active Substance: TETRABENAZINE
     Indication: HUNTINGTON^S DISEASE
     Dosage: 25 MG 3 TIMES DAILY THEN 25 MG 1/2 TABLET EVERY MORNING + 1/2 TABLET DAILY AT BEDTIME
     Route: 048
     Dates: start: 20131017
  2. XENAZINE [Suspect]
     Active Substance: TETRABENAZINE
     Indication: CHOREA

REACTIONS (3)
  - Somnolence [Unknown]
  - Hyperhidrosis [Unknown]
  - Feeling jittery [Unknown]
